FAERS Safety Report 9898959 (Version 1)
Quarter: 2014Q1

REPORT INFORMATION
  Report Type: Spontaneous
  Country: CH (occurrence: CH)
  Receive Date: 20140214
  Receipt Date: 20140214
  Transmission Date: 20141002
  Serious: Yes (Hospitalization, Other)
  Sender: FDA-Public Use
  Company Number: CH-PFIZER INC-2014041280

PATIENT
  Age: 73 Year
  Sex: Male

DRUGS (11)
  1. PODOMEXEF [Suspect]
     Indication: UPPER RESPIRATORY TRACT INFECTION
     Dosage: UNK
     Route: 048
     Dates: start: 20131211, end: 20131222
  2. VIMOVO [Suspect]
     Dosage: 1000/40 MG, 2XDAY
     Route: 048
     Dates: start: 20131223, end: 20131225
  3. AVALOX [Suspect]
     Indication: OTITIS MEDIA ACUTE
     Dosage: 400 MG, 1X/DAY
     Route: 048
     Dates: start: 20131223, end: 20131226
  4. PERENTEROL [Concomitant]
     Dosage: UNK
     Route: 048
     Dates: start: 201312
  5. PONSTAN [Concomitant]
     Dosage: UNK
     Route: 048
     Dates: start: 201312
  6. DAFALGAN [Concomitant]
     Dosage: UNK
     Route: 048
     Dates: start: 201312
  7. ASPIRIN CARDIO [Concomitant]
     Dosage: 100 MG, 1X/DAY
     Route: 048
  8. NEXIUM [Concomitant]
     Dosage: 40 MG, 1X/DAY
     Route: 048
  9. SORTIS [Concomitant]
     Dosage: 40 MG, 1X/DAY
     Route: 048
  10. ATACAND PLUS [Concomitant]
     Dosage: 8 OR 16/12.5 MG (1 IN 1 D)
     Route: 048
  11. LOCABIOTAL [Concomitant]
     Dosage: UNK
     Route: 048
     Dates: start: 201312

REACTIONS (1)
  - Hypersensitivity vasculitis [Recovering/Resolving]
